FAERS Safety Report 13864403 (Version 1)
Quarter: 2017Q3

REPORT INFORMATION
  Report Type: Spontaneous
  Country: US (occurrence: US)
  Receive Date: 20170812
  Receipt Date: 20170812
  Transmission Date: 20171127
  Serious: No
  Sender: FDA-Public Use
  Company Number: None

PATIENT
  Age: 56 Year
  Sex: Female
  Weight: 58.05 kg

DRUGS (4)
  1. PHENYLEPHRINE [Concomitant]
     Active Substance: PHENYLEPHRINE\PHENYLEPHRINE HYDROCHLORIDE
  2. TESSALON [Concomitant]
     Active Substance: BENZONATATE
  3. LEVOFLOXACIN 500MG [Suspect]
     Active Substance: LEVOFLOXACIN
     Indication: PNEUMONIA
     Dosage: ?          QUANTITY:1 TABLET(S);?
     Route: 048
     Dates: start: 20170729, end: 20170803
  4. MUCINEX SR [Concomitant]

REACTIONS (4)
  - Arthralgia [None]
  - Paraesthesia [None]
  - Feeling abnormal [None]
  - Dissociative disorder [None]

NARRATIVE: CASE EVENT DATE: 20170731
